FAERS Safety Report 8019470-5 (Version None)
Quarter: 2012Q1

REPORT INFORMATION
  Report Type: 
  Country: None (occurrence: None)
  Receive Date: 20120103
  Receipt Date: 20111229
  Transmission Date: 20120608
  Serious: Yes (Other)
  Sender: FDA-Public Use
  Company Number: PHEH2011US04828

PATIENT
  Sex: Male

DRUGS (5)
  1. TASIGNA [Suspect]
     Dosage: DOSE REDUCED
  2. DILAUDID [Concomitant]
  3. PHENERGAN [Concomitant]
  4. TASIGNA [Suspect]
     Indication: LEUKAEMIA
     Dosage: 400 MG, BID
     Route: 048
     Dates: start: 20110601
  5. ULORIC [Concomitant]

REACTIONS (5)
  - BLISTER [None]
  - SKIN EXFOLIATION [None]
  - PYREXIA [None]
  - SWELLING [None]
  - RASH PRURITIC [None]
